FAERS Safety Report 7261431-8 (Version None)
Quarter: 2011Q1

REPORT INFORMATION
  Report Type: 
  Country: None (occurrence: None)
  Receive Date: 20110124
  Receipt Date: 20110124
  Transmission Date: 20110831
  Serious: Yes (Other)
  Sender: FDA-Public Use
  Company Number: None

PATIENT
  Age: 67 Year
  Sex: Male

DRUGS (1)
  1. ALCOHOL SWABS ULTLIET [Suspect]
     Dates: start: 20101230

REACTIONS (8)
  - SWELLING [None]
  - FATIGUE [None]
  - FEELING HOT [None]
  - URINARY INCONTINENCE [None]
  - BONE PAIN [None]
  - PAIN [None]
  - BURNING SENSATION [None]
  - ERYTHEMA [None]
